FAERS Safety Report 7982235-4 (Version None)
Quarter: 2011Q4

REPORT INFORMATION
  Report Type: 
  Country: None (occurrence: None)
  Receive Date: 20111215
  Receipt Date: 20111215
  Transmission Date: 20120403
  Serious: Yes (Hospitalization)
  Sender: FDA-Public Use
  Company Number: None

PATIENT
  Age: 48 Year
  Sex: Female
  Weight: 52.163 kg

DRUGS (3)
  1. SOLU-MEDROL [Suspect]
  2. AVELOX [Concomitant]
  3. ZOPENEX [Concomitant]

REACTIONS (7)
  - NAUSEA [None]
  - INSOMNIA [None]
  - PANIC ATTACK [None]
  - TREMOR [None]
  - ANXIETY [None]
  - DYSPNOEA [None]
  - DRUG INEFFECTIVE [None]
